FAERS Safety Report 16991637 (Version 1)
Quarter: 2019Q4

REPORT INFORMATION
  Report Type: Spontaneous
  Country: CN (occurrence: CN)
  Receive Date: 20191104
  Receipt Date: 20191104
  Transmission Date: 20200122
  Serious: Yes (Other)
  Sender: FDA-Public Use
  Company Number: CN-BAXTER-2019BAX021763

PATIENT
  Age: 24 Year
  Sex: Male
  Weight: 70 kg

DRUGS (8)
  1. AINUONING [Suspect]
     Active Substance: IDARUBICIN HYDROCHLORIDE
     Indication: ACUTE LYMPHOCYTIC LEUKAEMIA
     Dosage: AINUONING 10 MG + 0.9% NS 100 ML
     Route: 041
     Dates: start: 20191006, end: 20191008
  2. VINDESINE SULFATE [Suspect]
     Active Substance: VINDESINE SULFATE
     Indication: ACUTE LYMPHOCYTIC LEUKAEMIA
     Dosage: VINDESINE SULFATE 3 MG + 0.9% NS 100 ML
     Route: 042
     Dates: start: 20191006, end: 20191006
  3. 0.9% SODIUM CHLORIDE INJECTION [Suspect]
     Active Substance: SODIUM CHLORIDE
     Dosage: AINUONING 10 MG + 0.9% NS 100 ML
     Route: 041
     Dates: start: 20191006, end: 20191008
  4. 0.9% SODIUM CHLORIDE INJECTION [Suspect]
     Active Substance: SODIUM CHLORIDE
     Dosage: VINDESINE SULFATE 3 MG + 0.9% NS 100 ML
     Route: 042
     Dates: start: 20191006, end: 20191006
  5. CYTARABINE HYDROCHLORIDE [Suspect]
     Active Substance: CYTARABINE HYDROCHLORIDE
     Indication: ACUTE LYMPHOCYTIC LEUKAEMIA
     Dosage: CYTARABINE HYDROCHLORIDE 75 MG + 0.9% NS 250 ML
     Route: 041
     Dates: start: 20191006, end: 20191008
  6. 0.9% SODIUM CHLORIDE INJECTION [Suspect]
     Active Substance: SODIUM CHLORIDE
     Dosage: CYTARABINE HYDROCHLORIDE 75 MG + 0.9% NS 250 ML
     Route: 041
     Dates: start: 20191006, end: 20191008
  7. 0.9% SODIUM CHLORIDE INJECTION [Suspect]
     Active Substance: SODIUM CHLORIDE
     Indication: MEDICATION DILUTION
     Dosage: ENDOXAN 1 G + 0.9% NS 100 ML
     Route: 041
     Dates: start: 20191006, end: 20191006
  8. ENDOXAN [Suspect]
     Active Substance: CYCLOPHOSPHAMIDE
     Indication: ACUTE LYMPHOCYTIC LEUKAEMIA
     Dosage: ENDOXAN 1 G + 0.9% NS (NORMAL SALINE) 100 ML
     Route: 041
     Dates: start: 20191006, end: 20191006

REACTIONS (1)
  - Bone marrow failure [Recovering/Resolving]

NARRATIVE: CASE EVENT DATE: 20191019
